FAERS Safety Report 20923515 (Version 1)
Quarter: 2022Q2

REPORT INFORMATION
  Report Type: Spontaneous
  Country: US (occurrence: None)
  Receive Date: 20220606
  Receipt Date: 20220606
  Transmission Date: 20220721
  Serious: Yes (Hospitalization)
  Sender: FDA-Public Use
  Company Number: None

PATIENT
  Age: 47 Year
  Sex: Female
  Weight: 107.05 kg

DRUGS (10)
  1. IBRANCE [Suspect]
     Active Substance: PALBOCICLIB
     Indication: Breast cancer female
     Dosage: 100MG 3W, 1W OFF ORAL?
     Route: 048
  2. LISINOPRIL [Concomitant]
     Active Substance: LISINOPRIL
  3. ZYRTEC [Concomitant]
     Active Substance: CETIRIZINE HYDROCHLORIDE
  4. Potachloride [Concomitant]
  5. PANTOPRAZOLE SODIUM [Concomitant]
     Active Substance: PANTOPRAZOLE SODIUM
  6. OXYCODONE [Concomitant]
     Active Substance: OXYCODONE
  7. MELOXICAM [Concomitant]
     Active Substance: MELOXICAM
  8. FAMOTIDINE [Concomitant]
     Active Substance: FAMOTIDINE
  9. MELATONIN [Concomitant]
     Active Substance: MELATONIN
  10. ZOFRAN [Concomitant]
     Active Substance: ONDANSETRON HYDROCHLORIDE

REACTIONS (3)
  - Muscular weakness [None]
  - Pain [None]
  - Therapy interrupted [None]
